FAERS Safety Report 7703524-4 (Version None)
Quarter: 2011Q3

REPORT INFORMATION
  Report Type: 
  Country: None (occurrence: None)
  Receive Date: 20110823
  Receipt Date: 20110822
  Transmission Date: 20111222
  Serious: Yes (Life-Threatening)
  Sender: FDA-Public Use
  Company Number: NO-PFIZER INC-2011193358

PATIENT
  Age: 45 Year
  Sex: Female

DRUGS (1)
  1. CYTOTEC [Suspect]
     Indication: ABORTION SPONTANEOUS
     Route: 048
     Dates: start: 20110731, end: 20110731

REACTIONS (2)
  - CARDIAC FAILURE [None]
  - OFF LABEL USE [None]
